FAERS Safety Report 25756025 (Version 1)
Quarter: 2025Q3

REPORT INFORMATION
  Report Type: Spontaneous
  Country: CN (occurrence: CN)
  Receive Date: 20250903
  Receipt Date: 20250903
  Transmission Date: 20251020
  Serious: Yes (Hospitalization)
  Sender: PFIZER
  Company Number: CN-TAKEDA-2025TUS076048

PATIENT
  Age: 71 Year
  Sex: Male
  Weight: 66 kg

DRUGS (3)
  1. BRENTUXIMAB VEDOTIN [Suspect]
     Active Substance: BRENTUXIMAB VEDOTIN
     Indication: Hodgkin^s disease
     Dosage: 100 MILLIGRAM, QD
     Route: 041
     Dates: start: 20250728
  2. SODIUM CHLORIDE [Suspect]
     Active Substance: SODIUM CHLORIDE
     Indication: Hodgkin^s disease
     Dosage: 140 MILLILITER, QD
     Route: 041
     Dates: start: 20250728
  3. STERILE WATER FOR INJECTION [Concomitant]
     Active Substance: WATER
     Indication: Hodgkin^s disease
     Dosage: 25 MILLILITER, QD
     Route: 041
     Dates: start: 20250728, end: 20250728

REACTIONS (3)
  - White blood cell count decreased [Recovering/Resolving]
  - Neutrophil count decreased [Recovering/Resolving]
  - Myelosuppression [Recovering/Resolving]

NARRATIVE: CASE EVENT DATE: 20250820
